FAERS Safety Report 11652096 (Version 10)
Quarter: 2016Q1

REPORT INFORMATION
  Report Type: Spontaneous
  Country: US (occurrence: US)
  Receive Date: 20151022
  Receipt Date: 20160303
  Transmission Date: 20160525
  Serious: Yes (Hospitalization)
  Sender: FDA-Public Use
  Company Number: US-PFIZER INC-2015295472

PATIENT
  Age: 83 Year
  Sex: Male
  Weight: 66 kg

DRUGS (9)
  1. LEVOTHYROXINE SODIUM. [Concomitant]
     Active Substance: LEVOTHYROXINE SODIUM
     Indication: THYROID DISORDER
     Dosage: UNK
     Dates: start: 201510
  2. LISINOPRIL. [Concomitant]
     Active Substance: LISINOPRIL
     Indication: CARDIAC DISORDER
     Dosage: 20 MG, DAILY
     Route: 048
     Dates: start: 20151103, end: 201511
  3. PANTOPRAZOLE [Concomitant]
     Active Substance: PANTOPRAZOLE SODIUM
     Indication: GASTROINTESTINAL DISORDER
     Dosage: 40 MG, 1X/DAY
     Route: 048
     Dates: start: 20151103, end: 201511
  4. LEVOTHYROXINE. [Concomitant]
     Active Substance: LEVOTHYROXINE
  5. SUTENT [Suspect]
     Active Substance: SUNITINIB MALATE
     Indication: RENAL CANCER STAGE IV
     Dosage: 50 MG, CYCLIC FOR 2 WEEKS ON/1 WEEK OFF
     Route: 048
     Dates: start: 20150916, end: 20151021
  6. SUTENT [Suspect]
     Active Substance: SUNITINIB MALATE
     Dosage: 50 MG, CYCLIC FOR 2 WEEKS ON/1 WEEK OFF
     Dates: start: 20151105, end: 20151111
  7. SUTENT [Suspect]
     Active Substance: SUNITINIB MALATE
     Dosage: 50 MG, CYCLIC FOR 2 WEEKS ON/1 WEEK OFF
  8. GABAPENTIN. [Concomitant]
     Active Substance: GABAPENTIN
     Dosage: 100 MG, UNK
     Route: 048
     Dates: end: 20150901
  9. LEVOTHYROXINE SODIUM. [Concomitant]
     Active Substance: LEVOTHYROXINE SODIUM
     Dosage: 25 MG, 1X/DAY
     Route: 048
     Dates: start: 20151103, end: 201511

REACTIONS (30)
  - Abdominal pain [Recovering/Resolving]
  - Peripheral swelling [Unknown]
  - Eyelid oedema [Not Recovered/Not Resolved]
  - Discomfort [Unknown]
  - Fatigue [Unknown]
  - Rash [Unknown]
  - Increased appetite [Unknown]
  - Inguinal hernia [Unknown]
  - Hypoaesthesia [Unknown]
  - Haematuria [Not Recovered/Not Resolved]
  - Weight increased [Unknown]
  - Erythema [Unknown]
  - Procedural pain [Not Recovered/Not Resolved]
  - Mass [Unknown]
  - Hiatus hernia [Unknown]
  - Platelet count decreased [Unknown]
  - Decreased appetite [Unknown]
  - Peripheral swelling [Unknown]
  - Dysgeusia [Not Recovered/Not Resolved]
  - Weight fluctuation [Unknown]
  - Lacrimation increased [Unknown]
  - Headache [Recovering/Resolving]
  - Colitis [Unknown]
  - Nasal congestion [Unknown]
  - Cough [Unknown]
  - Swelling face [Recovered/Resolved]
  - Nasopharyngitis [Unknown]
  - Alopecia [Unknown]
  - Eye swelling [Not Recovered/Not Resolved]
  - Thyroid disorder [Unknown]

NARRATIVE: CASE EVENT DATE: 201602
